FAERS Safety Report 4774361-8 (Version None)
Quarter: 2005Q3

REPORT INFORMATION
  Report Type: 
  Country: None (occurrence: None)
  Receive Date: 20050914
  Receipt Date: 20050404
  Transmission Date: 20060218
  Serious: Yes (Death, Other)
  Sender: FDA-Public Use
  Company Number: 163-20785-05040043

PATIENT
  Age: 56 Year
  Sex: Male

DRUGS (2)
  1. THALOMID [Suspect]
     Indication: MYELODYSPLASTIC SYNDROME
     Dosage: 150 MG, DAILY, ORAL
     Route: 048
     Dates: start: 20050209, end: 20050224
  2. ATG (ANTITHYMOCYTE IMMUNOGLOBULIN) [Concomitant]

REACTIONS (3)
  - DEATH [None]
  - NEUTROPENIA [None]
  - SEPSIS [None]
